FAERS Safety Report 15648654 (Version 1)
Quarter: 2018Q4

REPORT INFORMATION
  Report Type: Report from Study
  Country: US (occurrence: US)
  Receive Date: 20181122
  Receipt Date: 20181122
  Transmission Date: 20190205
  Serious: Yes (Other)
  Sender: FDA-Public Use
  Company Number: US-TEVA-2018-US-979530

PATIENT

DRUGS (3)
  1. PHYSOSTIGMINE [Suspect]
     Active Substance: PHYSOSTIGMINE
     Route: 065
  2. CYCLOBENZAPRINE. [Suspect]
     Active Substance: CYCLOBENZAPRINE
     Route: 065
  3. QUETIAPINE. [Suspect]
     Active Substance: QUETIAPINE
     Route: 065

REACTIONS (3)
  - Delirium [Unknown]
  - Coma [Unknown]
  - Agitation [Unknown]
